FAERS Safety Report 19186338 (Version 1)
Quarter: 2021Q2

REPORT INFORMATION
  Report Type: Spontaneous
  Country: DE (occurrence: DE)
  Receive Date: 20210427
  Receipt Date: 20210427
  Transmission Date: 20210717
  Serious: Yes (Other)
  Sender: FDA-Public Use
  Company Number: DE-ELI_LILLY_AND_COMPANY-DE202104008194

PATIENT
  Age: 27 Year
  Sex: Female

DRUGS (4)
  1. PROMETHAZINE [Suspect]
     Active Substance: PROMETHAZINE HYDROCHLORIDE
     Indication: BRIEF PSYCHOTIC DISORDER, WITH POSTPARTUM ONSET
     Dosage: UNK, SINGLE
     Route: 065
  2. OLANZAPINE. [Suspect]
     Active Substance: OLANZAPINE
     Indication: BRIEF PSYCHOTIC DISORDER, WITH POSTPARTUM ONSET
     Dosage: 20 MG, DAILY
     Route: 065
  3. VALPROIC ACID. [Suspect]
     Active Substance: VALPROIC ACID
     Indication: BRIEF PSYCHOTIC DISORDER, WITH POSTPARTUM ONSET
     Dosage: 1200 MG, DAILY
     Route: 065
  4. ZUCLOPENTHIXOL [Suspect]
     Active Substance: ZUCLOPENTHIXOL
     Indication: BRIEF PSYCHOTIC DISORDER, WITH POSTPARTUM ONSET
     Dosage: 40 MG, UNKNOWN
     Route: 065

REACTIONS (17)
  - Tachycardia [Unknown]
  - Neuroleptic malignant syndrome [Unknown]
  - Liver function test increased [Unknown]
  - Hyperhidrosis [Unknown]
  - Tension [Unknown]
  - Fibrin D dimer increased [Unknown]
  - Stupor [Unknown]
  - Hypertension [Unknown]
  - Dermatitis allergic [Unknown]
  - Hypokalaemia [Unknown]
  - Chills [Unknown]
  - Aggression [Unknown]
  - Psychomotor hyperactivity [Unknown]
  - Electrocardiogram QT prolonged [Unknown]
  - Blood creatine phosphokinase increased [Unknown]
  - Pyrexia [Unknown]
  - Hypertonia [Unknown]
